FAERS Safety Report 7212639-9 (Version None)
Quarter: 2010Q4

REPORT INFORMATION
  Report Type: 
  Country: None (occurrence: None)
  Receive Date: 20101227
  Receipt Date: 20101220
  Transmission Date: 20110411
  Serious: Yes (Death)
  Sender: FDA-Public Use
  Company Number: DKLU1067268

PATIENT
  Age: 19 Month
  Sex: Male
  Weight: 11 kg

DRUGS (2)
  1. SABRIL [Suspect]
     Indication: EPILEPSY
     Dosage: 750 MG MILLIGRAM(S), 2 IN 1 D, ORAL
     Route: 048
     Dates: start: 20100324, end: 20101201
  2. SABRIL [Suspect]
     Indication: INFANTILE SPASMS
     Dosage: 750 MG MILLIGRAM(S), 2 IN 1 D, ORAL
     Route: 048
     Dates: start: 20100324, end: 20101201

REACTIONS (1)
  - DEATH [None]
